FAERS Safety Report 5958298-4 (Version None)
Quarter: 2008Q4

REPORT INFORMATION
  Report Type: 
  Country: None (occurrence: None)
  Receive Date: 20081119
  Receipt Date: 20081114
  Transmission Date: 20090506
  Serious: Yes (Hospitalization)
  Sender: FDA-Public Use
  Company Number: GB-ABBOTT-08P-167-0488133-00

PATIENT
  Age: 73 Year
  Sex: Female
  Weight: 42 kg

DRUGS (5)
  1. HUMIRA [Suspect]
     Indication: RHEUMATOID ARTHRITIS
     Dates: start: 20080501
  2. RAMIPRIL [Concomitant]
     Indication: HYPERTENSION
  3. TIOTROPIUM BROMIDE [Concomitant]
     Indication: ASTHMA
  4. ALBUTEROL SULFATE [Concomitant]
     Indication: ASTHMA
  5. BECLOMETHASONE DIPROPIONATE [Concomitant]
     Indication: ASTHMA

REACTIONS (7)
  - ASPHYXIA [None]
  - BRONCHIAL SECRETION RETENTION [None]
  - COLLAPSE OF LUNG [None]
  - COUGH [None]
  - DYSPNOEA [None]
  - OBSTRUCTIVE AIRWAYS DISORDER [None]
  - PNEUMONIA [None]
